FAERS Safety Report 10547638 (Version 1)
Quarter: 2014Q4

REPORT INFORMATION
  Report Type: Spontaneous
  Country: US (occurrence: None)
  Receive Date: 20141010
  Receipt Date: 20141010
  Transmission Date: 20150529
  Serious: Yes (Hospitalization)
  Sender: FDA-Public Use
  Company Number: 163-POMAL-14061649

PATIENT
  Age: 73 Year
  Sex: Female

DRUGS (1)
  1. POMALYST [Suspect]
     Active Substance: POMALIDOMIDE
     Indication: MYELODYSPLASTIC SYNDROME
     Dosage: 1 MG, 1 IN 1 D, PO
     Route: 048
     Dates: start: 201405

REACTIONS (3)
  - Platelet count decreased [None]
  - Full blood count decreased [None]
  - Drug ineffective [None]

NARRATIVE: CASE EVENT DATE: 2014
